FAERS Safety Report 13936165 (Version 1)
Quarter: 2017Q3

REPORT INFORMATION
  Report Type: Spontaneous
  Country: US (occurrence: US)
  Receive Date: 20170905
  Receipt Date: 20170905
  Transmission Date: 20171127
  Serious: Yes (Other)
  Sender: FDA-Public Use
  Company Number: US-ASTELLAS-2017US024052

PATIENT
  Age: 77 Year
  Sex: Male

DRUGS (1)
  1. XTANDI [Suspect]
     Active Substance: ENZALUTAMIDE
     Indication: PROSTATE CANCER METASTATIC
     Route: 065
     Dates: start: 201602

REACTIONS (9)
  - Decreased appetite [Unknown]
  - Fatigue [Unknown]
  - Back pain [Unknown]
  - Cerebrovascular accident [Unknown]
  - Hot flush [Unknown]
  - Peripheral swelling [Unknown]
  - Vertigo [Unknown]
  - Confusional state [Unknown]
  - Constipation [Unknown]

NARRATIVE: CASE EVENT DATE: 20170829
